FAERS Safety Report 12547795 (Version 3)
Quarter: 2016Q3

REPORT INFORMATION
  Report Type: Report from Study
  Country: CA (occurrence: CA)
  Receive Date: 20160712
  Receipt Date: 20160727
  Transmission Date: 20161109
  Serious: Yes (Other)
  Sender: FDA-Public Use
  Company Number: CA-JNJFOC-20160707003

PATIENT
  Age: 68 Year
  Sex: Female
  Weight: 51.9 kg

DRUGS (1)
  1. REMICADE [Suspect]
     Active Substance: INFLIXIMAB
     Indication: CROHN^S DISEASE
     Route: 042

REACTIONS (5)
  - Intracranial aneurysm [Not Recovered/Not Resolved]
  - Pneumonia [Recovered/Resolved]
  - Neck injury [Unknown]
  - Aneurysm [Unknown]
  - Nervousness [Unknown]

NARRATIVE: CASE EVENT DATE: 201512
